FAERS Safety Report 4832421-7 (Version None)
Quarter: 2005Q4

REPORT INFORMATION
  Report Type: 
  Country: None (occurrence: None)
  Receive Date: 20051117
  Receipt Date: 20051102
  Transmission Date: 20060501
  Serious: Yes (Death, Life-Threatening)
  Sender: FDA-Public Use
  Company Number: 219146

PATIENT
  Age: 66 Year
  Sex: Male
  Weight: 68.5 kg

DRUGS (3)
  1. ERLOTINIB(ERLOTINIB) TABLET [Suspect]
     Indication: NON-SMALL CELL LUNG CANCER
     Dosage: 150 MG, QD, ORAL
     Route: 048
     Dates: start: 20050914, end: 20051001
  2. ERLOTINIB (ERLOTINIB) TABLET [Suspect]
  3. AVASTIN [Suspect]
     Indication: NON-SMALL CELL LUNG CANCER
     Dosage: 1035 MG, Q3W, INTRAVENOUS
     Route: 042

REACTIONS (5)
  - CARDIO-RESPIRATORY ARREST [None]
  - DEHYDRATION [None]
  - HAEMOPTYSIS [None]
  - MALIGNANT NEOPLASM PROGRESSION [None]
  - NON-SMALL CELL LUNG CANCER [None]
